FAERS Safety Report 8481237-1 (Version None)
Quarter: 2012Q2

REPORT INFORMATION
  Report Type: 
  Country: None (occurrence: None)
  Receive Date: 20120625
  Receipt Date: 20120611
  Transmission Date: 20120825
  Serious: Yes (Death, Hospitalization)
  Sender: FDA-Public Use
  Company Number: UTC-018465

PATIENT
  Age: 63 Year
  Sex: Female
  Weight: 50.5 kg

DRUGS (16)
  1. ADCIRCA [Concomitant]
  2. FRAGMIN [Concomitant]
  3. VITAMIN D [Concomitant]
  4. CLONAZEPAM [Concomitant]
  5. LOPERAMIDE [Concomitant]
  6. FUROSEMIDE [Concomitant]
  7. ACETAMINOPHEN [Concomitant]
  8. ESCITALOPRAM OXALATE [Concomitant]
  9. TRAZODONE HCL [Concomitant]
  10. POTASSIUM CHLORIDE [Concomitant]
  11. RABEPRAZOLE SODIUM [Suspect]
  12. ZOPICLONE (ZOPICLONE) [Concomitant]
  13. REMODULIN [Suspect]
     Indication: PULMONARY ARTERIAL HYPERTENSION
     Dosage: 72 UG/KG (0.05 UG/KG, 1IN 1 MIN), SUBCUTANEOUS ; 75.6 UG/KG (0.0525 UG/KG, 1 IN 1 MIN), SUBCUTANEOUS
     Route: 058
     Dates: start: 20120401
  14. REMODULIN [Suspect]
     Indication: PULMONARY ARTERIAL HYPERTENSION
     Dosage: 72 UG/KG (0.05 UG/KG, 1IN 1 MIN), SUBCUTANEOUS ; 75.6 UG/KG (0.0525 UG/KG, 1 IN 1 MIN), SUBCUTANEOUS
     Route: 058
     Dates: start: 20100101
  15. CALCUIM (CALCIUM) [Concomitant]
  16. ASPIRIN [Concomitant]

REACTIONS (4)
  - CONDITION AGGRAVATED [None]
  - PULMONARY ARTERIAL HYPERTENSION [None]
  - THROMBOCYTOPENIA [None]
  - PRESYNCOPE [None]
